FAERS Safety Report 4827652-6 (Version None)
Quarter: 2005Q4

REPORT INFORMATION
  Report Type: 
  Country: None (occurrence: None)
  Receive Date: 20051114
  Receipt Date: 20050801
  Transmission Date: 20060501
  Serious: Yes (Hospitalization)
  Sender: FDA-Public Use
  Company Number: US-MERCK-0508USA00731

PATIENT
  Sex: Female
  Weight: 61 kg

DRUGS (11)
  1. VIOXX [Suspect]
     Indication: OSTEOARTHRITIS
     Route: 048
     Dates: start: 20001014, end: 20040905
  2. CARTIA XT [Concomitant]
     Route: 065
  3. RYNATAN [Concomitant]
     Route: 065
  4. INTAL [Concomitant]
     Route: 065
  5. NASONEX [Concomitant]
     Route: 065
  6. METOPROLOL [Concomitant]
     Route: 065
  7. DITROPAN [Concomitant]
     Route: 065
  8. SEMPREX [Concomitant]
     Route: 065
  9. PREMPRO [Concomitant]
     Route: 065
     Dates: start: 19970324, end: 20021004
  10. VANCENASE AQ NASAL SPRAY [Concomitant]
     Route: 065
  11. TRIOTANN [Concomitant]
     Route: 065

REACTIONS (12)
  - ANXIETY [None]
  - ARTERIAL OCCLUSIVE DISEASE [None]
  - ARTHROPATHY [None]
  - ASTHMA [None]
  - BRONCHIECTASIS [None]
  - CHRONIC OBSTRUCTIVE PULMONARY DISEASE [None]
  - CORONARY ARTERY DISEASE [None]
  - DEPRESSION [None]
  - GASTROINTESTINAL DISORDER [None]
  - IMMUNE SYSTEM DISORDER [None]
  - LOWER RESPIRATORY TRACT INFECTION [None]
  - MYOCARDIAL INFARCTION [None]
